FAERS Safety Report 8927514 (Version 3)
Quarter: 2013Q1

REPORT INFORMATION
  Report Type: Spontaneous
  Country: US (occurrence: US)
  Receive Date: 20121127
  Receipt Date: 20130123
  Transmission Date: 20140127
  Serious: Yes (Death, Life-Threatening)
  Sender: FDA-Public Use
  Company Number: US-B.I. PHARMACEUTICALS,INC./RIDGEFIELD-2012-BI-01083BP

PATIENT
  Sex: Male
  Weight: 89.36 kg

DRUGS (11)
  1. PRADAXA [Suspect]
     Indication: ATRIAL FIBRILLATION
     Dosage: 300 MG
     Dates: start: 2010
  2. METOPROLOL [Concomitant]
     Dosage: 100 MG
  3. LIPITOR [Concomitant]
     Dosage: 100 MG
  4. CITALOPRAM [Concomitant]
  5. LISINOPRIL [Concomitant]
     Dosage: 50 MG
  6. CARDIZEM [Concomitant]
  7. SYNTHROID [Concomitant]
     Dosage: 25 MG
  8. MIRAPEX [Concomitant]
     Dosage: 25 MG
  9. GLUCOSAMINE/CHONDROITIN [Concomitant]
  10. TUMS [Concomitant]
     Dosage: 1200 MG
  11. VIT C [Concomitant]
     Dosage: 500 MG

REACTIONS (2)
  - Aneurysm ruptured [Fatal]
  - Cardiac arrest [Unknown]
